FAERS Safety Report 11118370 (Version 2)
Quarter: 2015Q2

REPORT INFORMATION
  Report Type: Spontaneous
  Country: US (occurrence: US)
  Receive Date: 20150518
  Receipt Date: 20150619
  Transmission Date: 20150821
  Serious: Yes (Hospitalization, Disabling, Other)
  Sender: FDA-Public Use
  Company Number: US-009507513-1203USA02678

PATIENT
  Sex: Female
  Weight: 88.44 kg

DRUGS (2)
  1. FOSAMAX [Suspect]
     Active Substance: ALENDRONATE SODIUM
     Indication: BONE DENSITY DECREASED
     Dosage: 70 MG, QW
     Route: 048
     Dates: start: 20030915, end: 20080212
  2. ALENDRONATE SODIUM. [Suspect]
     Active Substance: ALENDRONATE SODIUM
     Indication: BONE DENSITY DECREASED
     Dosage: 70 MG, QW
     Route: 048
     Dates: start: 20080530, end: 20100607

REACTIONS (33)
  - Femur fracture [Recovering/Resolving]
  - Disability [Not Recovered/Not Resolved]
  - Vitamin D deficiency [Unknown]
  - Knee arthroplasty [Unknown]
  - Paraesthesia [Unknown]
  - Type V hyperlipidaemia [Unknown]
  - Osteopenia [Unknown]
  - Myositis [Unknown]
  - Knee arthroplasty [Unknown]
  - Osteoarthritis [Unknown]
  - Spinal fusion surgery [Unknown]
  - Osteoporosis [Unknown]
  - Genital herpes [Unknown]
  - Hysterectomy [Unknown]
  - Tenosynovitis stenosans [Not Recovered/Not Resolved]
  - Renal failure [Unknown]
  - Neck mass [Unknown]
  - Depression [Not Recovered/Not Resolved]
  - Calcium deficiency [Unknown]
  - Diverticulum [Unknown]
  - Myalgia [Unknown]
  - Gastrooesophageal reflux disease [Unknown]
  - Joint swelling [Unknown]
  - Femur fracture [Unknown]
  - Surgery [Unknown]
  - Tendonitis [Unknown]
  - Atrophic vulvovaginitis [Unknown]
  - Anaemia postoperative [Unknown]
  - Open reduction of fracture [Unknown]
  - Insomnia [Unknown]
  - Dermal cyst [Unknown]
  - Intervertebral disc degeneration [Unknown]
  - Arthralgia [Unknown]

NARRATIVE: CASE EVENT DATE: 20041201
